FAERS Safety Report 11798140 (Version 1)
Quarter: 2015Q4

REPORT INFORMATION
  Report Type: Spontaneous
  Country: BR (occurrence: BR)
  Receive Date: 20151203
  Receipt Date: 20151203
  Transmission Date: 20160305
  Serious: Yes (Life-Threatening, Other)
  Sender: FDA-Public Use
  Company Number: BR-JNJFOC-20151126525

PATIENT

DRUGS (1)
  1. LEVAQUIN [Suspect]
     Active Substance: LEVOFLOXACIN
     Indication: PRODUCT USED FOR UNKNOWN INDICATION
     Route: 065

REACTIONS (17)
  - Musculoskeletal disorder [Unknown]
  - Hearing impaired [Unknown]
  - Neuropathy peripheral [Unknown]
  - Psychotic disorder [Unknown]
  - Blindness [Unknown]
  - Cerebrovascular accident [Unknown]
  - Retinal detachment [Unknown]
  - Diarrhoea [Unknown]
  - Adverse drug reaction [Unknown]
  - Nervous system disorder [Unknown]
  - Diabetes mellitus [Unknown]
  - Photosensitivity reaction [Unknown]
  - Hallucination [Unknown]
  - Depression [Unknown]
  - Nephropathy [Unknown]
  - Visual impairment [Unknown]
  - Nausea [Unknown]

NARRATIVE: CASE EVENT DATE: 2010
